FAERS Safety Report 13454997 (Version 3)
Quarter: 2017Q3

REPORT INFORMATION
  Report Type: Spontaneous
  Country: MX (occurrence: MX)
  Receive Date: 20170419
  Receipt Date: 20170720
  Transmission Date: 20171127
  Serious: Yes (Other)
  Sender: FDA-Public Use
  Company Number: MX-GUERBET-MX-20170030

PATIENT
  Age: 63 Year
  Sex: Female
  Weight: 76.5 kg

DRUGS (6)
  1. OPTIRAY 320 [Suspect]
     Active Substance: IOVERSOL
     Indication: COMPUTERISED TOMOGRAM THORAX
     Route: 042
     Dates: start: 20170315, end: 20170315
  2. TASELISIB. [Concomitant]
     Active Substance: TASELISIB
     Indication: BREAST CANCER
     Dosage: 4 MG/24H
     Route: 048
     Dates: start: 20160608
  3. HYDROCHLOROTHIAZIDE. [Concomitant]
     Active Substance: HYDROCHLOROTHIAZIDE
     Indication: HYPERTENSION
     Dosage: 12.5 MG/12H
     Route: 048
     Dates: start: 20160622
  4. VITAMIN D [Concomitant]
     Active Substance: CHOLECALCIFEROL
     Indication: PRODUCT USED FOR UNKNOWN INDICATION
     Dosage: 600 MG/24H
     Route: 048
     Dates: start: 20160608
  5. CAPTOPRIL. [Concomitant]
     Active Substance: CAPTOPRIL
     Indication: HYPERTENSION
     Dosage: 25 MG/12H
     Route: 048
     Dates: start: 20160608
  6. FULVESTRANT. [Concomitant]
     Active Substance: FULVESTRANT
     Indication: BREAST CANCER
     Dosage: 800 MG/24H
     Route: 030
     Dates: start: 20160608

REACTIONS (5)
  - Nausea [Recovered/Resolved]
  - Oxygen saturation decreased [Recovered/Resolved]
  - Discomfort [Recovered/Resolved]
  - Bronchospasm [Recovered/Resolved]
  - Headache [Recovered/Resolved]

NARRATIVE: CASE EVENT DATE: 20170315
